FAERS Safety Report 6047128-0 (Version None)
Quarter: 2009Q1

REPORT INFORMATION
  Report Type: 
  Country: None (occurrence: None)
  Receive Date: 20090122
  Receipt Date: 20090108
  Transmission Date: 20090719
  Serious: Yes (Other)
  Sender: FDA-Public Use
  Company Number: PHHY2009BR00950

PATIENT
  Weight: 49 kg

DRUGS (5)
  1. PARLODEL [Suspect]
     Dosage: 1 MG
     Route: 048
     Dates: start: 20050101
  2. OLCADIL [Suspect]
     Dosage: 2.5 MG
     Route: 048
     Dates: start: 20040101
  3. TAMARINE [Concomitant]
     Indication: CONSTIPATION
     Dosage: UNK
  4. PATANOL [Concomitant]
     Indication: PRURITUS
     Dosage: UNK
  5. OFTAN [Concomitant]
     Dosage: UNK
     Dates: start: 20081101

REACTIONS (10)
  - ADENOMA BENIGN [None]
  - BALANCE DISORDER [None]
  - BLOOD PRESSURE FLUCTUATION [None]
  - BLOOD PROLACTIN INCREASED [None]
  - CONFUSIONAL STATE [None]
  - DIZZINESS [None]
  - HEADACHE [None]
  - INFLUENZA [None]
  - LABYRINTHITIS [None]
  - NAUSEA [None]
